APPROVED DRUG PRODUCT: PROPOXYPHENE COMPOUND 65
Active Ingredient: ASPIRIN; CAFFEINE; PROPOXYPHENE HYDROCHLORIDE
Strength: 389MG;32.4MG;65MG
Dosage Form/Route: CAPSULE;ORAL
Application: A089025 | Product #001
Applicant: TEVA PHARMACEUTICALS USA INC
Approved: Mar 29, 1985 | RLD: No | RS: No | Type: DISCN